FAERS Safety Report 8164302-8 (Version None)
Quarter: 2012Q1

REPORT INFORMATION
  Report Type: 
  Country: None (occurrence: None)
  Receive Date: 20120224
  Receipt Date: 20110523
  Transmission Date: 20120608
  Serious: No
  Sender: FDA-Public Use
  Company Number: US-MYLANLABS-2011S1009679

PATIENT
  Age: 68 Year
  Sex: Female

DRUGS (3)
  1. ATENOLOL [Suspect]
     Indication: BLOOD PRESSURE INCREASED
     Route: 048
     Dates: end: 20110430
  2. ATENOLOL [Suspect]
     Indication: ANXIETY
     Route: 048
     Dates: end: 20110430
  3. ATENOLOL [Suspect]
     Indication: TREMOR
     Route: 048
     Dates: end: 20110430

REACTIONS (4)
  - ORAL DISCOMFORT [None]
  - OESOPHAGEAL PAIN [None]
  - THROAT IRRITATION [None]
  - GLOSSODYNIA [None]
